FAERS Safety Report 22371619 (Version 1)
Quarter: 2023Q2

REPORT INFORMATION
  Report Type: Spontaneous
  Country: US (occurrence: None)
  Receive Date: 20230525
  Receipt Date: 20230525
  Transmission Date: 20230721
  Serious: Yes (Hospitalization)
  Sender: FDA-Public Use
  Company Number: None

PATIENT
  Sex: Female

DRUGS (15)
  1. CAPECITABINE [Suspect]
     Active Substance: CAPECITABINE
     Indication: Colon cancer
     Dosage: 3T 14D ON/ 7D OFF BID PO? ?
     Route: 048
     Dates: start: 202305
  2. AMITRIPTYLINE [Concomitant]
     Active Substance: AMITRIPTYLINE
  3. BUPROPION [Concomitant]
     Active Substance: BUPROPION
  4. ESCITALOPRAM [Concomitant]
     Active Substance: ESCITALOPRAM OXALATE
  5. LIPITOR [Concomitant]
     Active Substance: ATORVASTATIN CALCIUM
  6. METOPROLOL [Concomitant]
     Active Substance: METOPROLOL
  7. VITAMINS [Concomitant]
     Active Substance: VITAMINS
  8. DEXAMETHASONE [Concomitant]
     Active Substance: DEXAMETHASONE
  9. ONDANSETRON [Concomitant]
     Active Substance: ONDANSETRON
  10. SUCRALFATE [Concomitant]
     Active Substance: SUCRALFATE
  11. MAGNESIUM [Concomitant]
     Active Substance: MAGNESIUM
  12. LORAZEPAM [Concomitant]
     Active Substance: LORAZEPAM
  13. LOMOTIL [Concomitant]
     Active Substance: ATROPINE SULFATE\DIPHENOXYLATE HYDROCHLORIDE
  14. OXYCODONE [Concomitant]
     Active Substance: OXYCODONE
  15. PANTOPRAZOLE [Concomitant]
     Active Substance: PANTOPRAZOLE

REACTIONS (2)
  - Vomiting [None]
  - Diarrhoea [None]
